FAERS Safety Report 8421073-5 (Version None)
Quarter: 2012Q2

REPORT INFORMATION
  Report Type: 
  Country: None (occurrence: None)
  Receive Date: 20120608
  Receipt Date: 20120604
  Transmission Date: 20120825
  Serious: Yes (Other)
  Sender: FDA-Public Use
  Company Number: US-BAYER-2012-056007

PATIENT
  Age: 28 Year
  Sex: Female

DRUGS (6)
  1. YAZ [Suspect]
     Dosage: UNK
     Dates: start: 20080101
  2. DROSPIRENONE AND ETHINYL ESTRADIOL [Suspect]
     Dosage: UNK
     Dates: start: 20080101
  3. YASMIN [Suspect]
     Dosage: UNK
     Dates: start: 20010101, end: 20050101
  4. YASMIN [Suspect]
     Dosage: UNK
     Dates: start: 20080101
  5. DROSPIRENONE AND ETHINYL ESTRADIOL [Suspect]
     Dosage: UNK
     Dates: start: 20010101, end: 20050101
  6. YAZ [Suspect]
     Dosage: UNK
     Dates: start: 20010101, end: 20050101

REACTIONS (6)
  - INJURY [None]
  - PSYCHOLOGICAL TRAUMA [None]
  - EMOTIONAL DISTRESS [None]
  - PAIN [None]
  - ANXIETY [None]
  - CHOLECYSTECTOMY [None]
